FAERS Safety Report 6866185-2 (Version None)
Quarter: 2010Q3

REPORT INFORMATION
  Report Type: 
  Country: None (occurrence: None)
  Receive Date: 20100722
  Receipt Date: 20100713
  Transmission Date: 20110219
  Serious: Yes (Other)
  Sender: FDA-Public Use
  Company Number: GB-ASTRAZENECA-2010SE32576

PATIENT
  Age: 85 Year
  Sex: Female

DRUGS (1)
  1. PROPOFOL [Suspect]
     Indication: SEDATION
     Route: 042
     Dates: start: 20100630, end: 20100630

REACTIONS (2)
  - DYSTONIA [None]
  - UNWANTED AWARENESS DURING ANAESTHESIA [None]
